FAERS Safety Report 4955761-X (Version None)
Quarter: 2006Q1

REPORT INFORMATION
  Report Type: 
  Country: None (occurrence: None)
  Receive Date: 20060127
  Receipt Date: 20050923
  Transmission Date: 20060701
  Serious: Yes (Death, Hospitalization, Other)
  Sender: FDA-Public Use
  Company Number: 2005-US-00303

PATIENT
  Age: 36 Year
  Sex: Female
  Weight: 57.1532 kg

DRUGS (4)
  1. CLOZAPINE [Suspect]
     Indication: SCHIZOAFFECTIVE DISORDER
     Dosage: 200 MG, QD, ORAL
     Route: 048
     Dates: start: 20050901, end: 20050901
  2. VALPROATE SODIUM [Suspect]
     Indication: SCHIZOAFFECTIVE DISORDER
     Dosage: 1500 MG, QD
  3. OLANZAPINE [Concomitant]
  4. CLONAZEPAM [Concomitant]

REACTIONS (4)
  - BLOOD AMYLASE INCREASED [None]
  - INTESTINAL OBSTRUCTION [None]
  - LIPASE INCREASED [None]
  - WHITE BLOOD CELL COUNT INCREASED [None]
